FAERS Safety Report 15806818 (Version 2)
Quarter: 2019Q1

REPORT INFORMATION
  Report Type: Spontaneous
  Country: US (occurrence: US)
  Receive Date: 20190110
  Receipt Date: 20190213
  Transmission Date: 20190417
  Serious: Yes (Death)
  Sender: FDA-Public Use
  Company Number: US-ELI_LILLY_AND_COMPANY-US201901004152

PATIENT
  Sex: Female
  Weight: 62.13 kg

DRUGS (1)
  1. HUMALOG [Suspect]
     Active Substance: INSULIN LISPRO
     Indication: PRODUCT USED FOR UNKNOWN INDICATION
     Dosage: 20 U, UNKNOWN (WITH MEALS)
     Route: 058
     Dates: start: 20150402

REACTIONS (2)
  - Renal disorder [Fatal]
  - Coronary artery disease [Fatal]
